FAERS Safety Report 17317107 (Version 1)
Quarter: 2020Q1

REPORT INFORMATION
  Report Type: Spontaneous
  Country: US (occurrence: US)
  Receive Date: 20200124
  Receipt Date: 20200124
  Transmission Date: 20200409
  Serious: No
  Sender: FDA-Public Use
  Company Number: US-TARO-2019TAR00808

PATIENT
  Age: 81 Year
  Sex: Male
  Weight: 90.7 kg

DRUGS (4)
  1. UNSPECIFIED MEDICATIONS [Concomitant]
     Active Substance: UNSPECIFIED INGREDIENT
  2. CLOBETASOL PROPIONATE FOAM 0.05% [Suspect]
     Active Substance: CLOBETASOL PROPIONATE
     Indication: SKIN EXFOLIATION
     Dosage: ^ONE PUMP FULL, GOLF BALL SIZE^, 4X/DAY
     Route: 061
     Dates: start: 20191120
  3. CLOBETASOL PROPIONATE FOAM 0.05% [Suspect]
     Active Substance: CLOBETASOL PROPIONATE
     Indication: ALOPECIA
  4. CLOBETASOL PROPIONATE FOAM 0.05% [Suspect]
     Active Substance: CLOBETASOL PROPIONATE
     Indication: DANDRUFF

REACTIONS (5)
  - Skin sensitisation [Not Recovered/Not Resolved]
  - Product prescribing error [Not Recovered/Not Resolved]
  - Sleep disorder [Not Recovered/Not Resolved]
  - Off label use [Not Recovered/Not Resolved]
  - Application site pain [Not Recovered/Not Resolved]

NARRATIVE: CASE EVENT DATE: 20191120
